FAERS Safety Report 9448203 (Version 1)
Quarter: 2013Q3

REPORT INFORMATION
  Report Type: Spontaneous
  Country: US (occurrence: None)
  Receive Date: 20130807
  Receipt Date: 20130807
  Transmission Date: 20140515
  Serious: Yes (Other)
  Sender: FDA-Public Use
  Company Number: None

PATIENT
  Age: 83 Year
  Sex: Female
  Weight: 68.04 kg

DRUGS (1)
  1. LEVOTHYROXINE [Suspect]
     Dates: start: 20071210, end: 20130103

REACTIONS (5)
  - Alopecia [None]
  - Madarosis [None]
  - Onychoclasis [None]
  - Nail growth abnormal [None]
  - Product substitution issue [None]
